FAERS Safety Report 6362055-7 (Version None)
Quarter: 2009Q3

REPORT INFORMATION
  Report Type: 
  Country: None (occurrence: None)
  Receive Date: 20090918
  Receipt Date: 20090908
  Transmission Date: 20100115
  Serious: Yes (Hospitalization, Other)
  Sender: FDA-Public Use
  Company Number: PHHY2008MX17275

PATIENT
  Sex: Female

DRUGS (4)
  1. STALEVO 100 [Suspect]
     Indication: PARKINSON'S DISEASE
     Dosage: 2 TABS (200/50/12.5 MG) PER DAY
     Route: 048
     Dates: start: 20060101
  2. AKATINOL [Concomitant]
     Indication: PARKINSON'S DISEASE
     Dosage: 3 TABLETS PER DAY
  3. EUTIROX [Concomitant]
     Indication: THYROID DISORDER
  4. LEXAPRO [Concomitant]
     Indication: ANXIETY

REACTIONS (3)
  - FALL [None]
  - FEMUR FRACTURE [None]
  - PAIN IN EXTREMITY [None]
